FAERS Safety Report 14410236 (Version 32)
Quarter: 2019Q3

REPORT INFORMATION
  Report Type: Spontaneous
  Country: JP (occurrence: JP)
  Receive Date: 20180119
  Receipt Date: 20190703
  Transmission Date: 20191004
  Serious: Yes (Hospitalization, Other)
  Sender: FDA-Public Use
  Company Number: JP-ASTELLAS-2017JP022622

PATIENT
  Age: 9 Decade
  Sex: Male

DRUGS (28)
  1. ALLELOCK [Concomitant]
     Active Substance: OLOPATADINE HYDROCHLORIDE
     Indication: PRURITUS
     Dosage: 1 DF, TWICE DAILY, AFTER BREAKFAST AND DINNER
     Route: 048
  2. MUCOSTA [Concomitant]
     Active Substance: REBAMIPIDE
     Indication: ABDOMINAL DISCOMFORT
     Dosage: UNK UNK, UNKNOWN FREQ.
     Route: 048
  3. METHYCOBAL [Concomitant]
     Active Substance: METHYLCOBALAMIN
     Indication: PRODUCT USED FOR UNKNOWN INDICATION
     Dosage: UNK UNK, UNKNOWN FREQ.
     Route: 048
  4. TRANSAMIN [Concomitant]
     Active Substance: TRANEXAMIC ACID
     Indication: PRODUCT USED FOR UNKNOWN INDICATION
     Dosage: UNK UNK, UNKNOWN FREQ.
     Route: 048
  5. VESICARE [Suspect]
     Active Substance: SOLIFENACIN SUCCINATE
     Dosage: 10 MG, ONCE DAILY, IN THE MORNING
     Route: 048
  6. DEPAS [Concomitant]
     Indication: PRODUCT USED FOR UNKNOWN INDICATION
     Dosage: UNK UNK, UNKNOWN FREQ.
     Route: 048
  7. ASVERIN (TIPEPIDINE HIBENZATE) [Concomitant]
     Active Substance: TIPEPIDINE HIBENZATE
     Indication: PRODUCT USED FOR UNKNOWN INDICATION
     Dosage: UNK UNK, UNKNOWN FREQ.
     Route: 048
  8. VESICARE [Suspect]
     Active Substance: SOLIFENACIN SUCCINATE
     Indication: PRODUCT USED FOR UNKNOWN INDICATION
     Dosage: UNK UNK, UNKNOWN FREQ.
     Route: 048
  9. BETANIS [Suspect]
     Active Substance: MIRABEGRON
     Indication: PRODUCT USED FOR UNKNOWN INDICATION
     Route: 048
  10. MYONAL                             /00287502/ [Concomitant]
     Active Substance: EPERISONE HYDROCHLORIDE
     Indication: PRODUCT USED FOR UNKNOWN INDICATION
     Dosage: UNK UNK, UNKNOWN FREQ.
     Route: 048
  11. MUCOSOLVAN [Concomitant]
     Active Substance: AMBROXOL HYDROCHLORIDE
     Indication: PRODUCT USED FOR UNKNOWN INDICATION
     Dosage: UNK UNK, UNKNOWN FREQ.
     Route: 048
  12. VESICARE [Suspect]
     Active Substance: SOLIFENACIN SUCCINATE
     Dosage: 5 MG, ONCE DAILY,DAYTIME
     Route: 048
  13. VESICARE [Suspect]
     Active Substance: SOLIFENACIN SUCCINATE
     Dosage: UNK UNK, UNKNOWN FREQ.
     Route: 048
  14. LOXONIN [Concomitant]
     Active Substance: LOXOPROFEN SODIUM
     Indication: PRODUCT USED FOR UNKNOWN INDICATION
     Dosage: UNK UNK, AS NEEDED
     Route: 048
  15. VESICARE [Suspect]
     Active Substance: SOLIFENACIN SUCCINATE
     Route: 048
  16. CELECOX [Suspect]
     Active Substance: CELECOXIB
     Indication: PRODUCT USED FOR UNKNOWN INDICATION
     Dosage: UNK UNK, UNKNOWN FREQ.
     Route: 048
  17. CELECOX [Suspect]
     Active Substance: CELECOXIB
     Dosage: UNK UNK, UNKNOWN FREQ.
     Route: 048
  18. CHOREITO [Concomitant]
     Indication: PRODUCT USED FOR UNKNOWN INDICATION
     Dosage: UNK UNK, UNKNOWN FREQ.
     Route: 065
  19. DEPAS [Concomitant]
     Dosage: UNK UNK, AS NEEDED
     Route: 048
  20. LYRICA [Concomitant]
     Active Substance: PREGABALIN
     Indication: PRODUCT USED FOR UNKNOWN INDICATION
     Dosage: UNK UNK, UNKNOWN FREQ.
     Route: 048
  21. VESICARE [Suspect]
     Active Substance: SOLIFENACIN SUCCINATE
     Route: 048
     Dates: start: 201707, end: 201708
  22. VESICARE [Suspect]
     Active Substance: SOLIFENACIN SUCCINATE
     Route: 048
  23. SYMBICORT [Concomitant]
     Active Substance: BUDESONIDE\FORMOTEROL FUMARATE DIHYDRATE
     Indication: PRODUCT USED FOR UNKNOWN INDICATION
     Dosage: UNK UNK, UNKNOWN FREQ.
     Route: 050
  24. CRAVIT [Concomitant]
     Active Substance: LEVOFLOXACIN
     Indication: PRODUCT USED FOR UNKNOWN INDICATION
     Dosage: UNK UNK, UNKNOWN FREQ.
     Route: 048
  25. HUSCODE [Concomitant]
     Active Substance: CHLORPHENIRAMINE MALEATE\DIHYDROCODEINE PHOSPHATE\METHYLEPHEDRINE HYDROCHLORIDE, DL-
     Indication: PRODUCT USED FOR UNKNOWN INDICATION
     Dosage: UNK UNK, UNKNOWN FREQ.
     Route: 065
  26. VESICARE [Suspect]
     Active Substance: SOLIFENACIN SUCCINATE
     Dosage: 5 MG, TWICE DAILY, MORNING AND EVENING
     Route: 048
  27. VESICARE [Suspect]
     Active Substance: SOLIFENACIN SUCCINATE
     Route: 048
  28. VESICARE [Suspect]
     Active Substance: SOLIFENACIN SUCCINATE
     Dosage: 5 MG, ONCE DAILY, AFTER BREAKFAST
     Route: 048

REACTIONS (50)
  - Prostatitis [Unknown]
  - Neuralgia [Unknown]
  - Vomiting [Unknown]
  - Constipation [Recovering/Resolving]
  - Abdominal discomfort [Recovering/Resolving]
  - Eye pruritus [Unknown]
  - Intentional product misuse [Unknown]
  - Limb operation [Not Recovered/Not Resolved]
  - Nausea [Recovered/Resolved]
  - Nephrolithiasis [Unknown]
  - Abdominal distension [Unknown]
  - Infected dermal cyst [Not Recovered/Not Resolved]
  - Rhinitis [Unknown]
  - Blood pressure increased [Unknown]
  - Dizziness [Unknown]
  - Abdominal discomfort [Unknown]
  - Pain in extremity [Not Recovered/Not Resolved]
  - Dizziness postural [Unknown]
  - Dysphagia [Unknown]
  - Headache [Unknown]
  - Nausea [Unknown]
  - Erythema [Unknown]
  - Nasopharyngitis [Unknown]
  - Gastrointestinal sounds abnormal [Unknown]
  - Insomnia [Unknown]
  - Vomiting [Unknown]
  - Pain of skin [Unknown]
  - Somnolence [Unknown]
  - Abdominal pain [Unknown]
  - Dysuria [Unknown]
  - Rash erythematous [Unknown]
  - Tendon rupture [Unknown]
  - Hyperventilation [Unknown]
  - Blood urine present [Not Recovered/Not Resolved]
  - Perineal pain [Unknown]
  - Thirst [Recovering/Resolving]
  - Somnolence [Unknown]
  - Pruritus [Unknown]
  - Pruritus genital [Unknown]
  - Dizziness [Unknown]
  - Rash [Unknown]
  - Peripheral coldness [Not Recovered/Not Resolved]
  - Off label use [Unknown]
  - Seizure [Recovered/Resolved]
  - Urinary incontinence [Recovering/Resolving]
  - Ocular hyperaemia [Unknown]
  - Urethritis [Unknown]
  - Dermatitis [Unknown]
  - Dry mouth [Unknown]
  - Insomnia [Unknown]

NARRATIVE: CASE EVENT DATE: 20180111
